FAERS Safety Report 25924564 (Version 1)
Quarter: 2025Q4

REPORT INFORMATION
  Report Type: Spontaneous
  Country: CN (occurrence: CN)
  Receive Date: 20251015
  Receipt Date: 20251015
  Transmission Date: 20260117
  Serious: Yes (Hospitalization)
  Sender: GILEAD
  Company Number: CN-GILEAD-2025-0732243

PATIENT
  Age: 51 Year
  Sex: Male

DRUGS (9)
  1. EPCLUSA [Suspect]
     Active Substance: SOFOSBUVIR\VELPATASVIR
     Indication: Chronic hepatitis C
     Dosage: 500MG/TIME ONCE A DAY.
     Route: 048
     Dates: start: 20250828, end: 20251010
  2. PYRAZINAMIDE [Suspect]
     Active Substance: PYRAZINAMIDE
     Indication: Pulmonary tuberculosis
     Dosage: 1.5G/TIME ONCE A DAY
     Route: 048
     Dates: start: 20250905, end: 20251010
  3. ETHAMBUTOL HYDROCHLORIDE [Concomitant]
     Active Substance: ETHAMBUTOL HYDROCHLORIDE
     Indication: Pulmonary tuberculosis
     Dosage: 0.75G/TIME ONCE A DAY
     Route: 048
     Dates: start: 20250905, end: 20251010
  4. VALPROATE SODIUM [Concomitant]
     Active Substance: VALPROATE SODIUM
     Indication: Schizophrenia
     Dosage: 0.5G/TIME ONCE A DAY
     Route: 048
     Dates: start: 20250828, end: 20251005
  5. AMISULPRIDE [Concomitant]
     Active Substance: AMISULPRIDE
     Indication: Schizophrenia
     Dosage: 0.2G/TIME ONCE A DAY
     Route: 048
     Dates: start: 20250828, end: 20251005
  6. FEBUXOSTAT [Concomitant]
     Active Substance: FEBUXOSTAT
     Indication: Blood uric acid
     Dosage: 40MG/TIME ONCE A DAY
     Route: 048
  7. HERBALS [Concomitant]
     Active Substance: HERBALS
     Indication: Renal impairment
     Dosage: 5G/TIME, THREE TIMES A DAY
     Route: 048
  8. FUROSEMIDE [Concomitant]
     Active Substance: FUROSEMIDE
     Indication: Fractional uric acid excretion
     Dosage: 20 MG/TIME ONCE A DAY
  9. SPIRONOLACTONE [Concomitant]
     Active Substance: SPIRONOLACTONE
     Indication: Fractional uric acid excretion
     Dosage: 20 MG/TIME ONCE A DAY

REACTIONS (1)
  - Hyperuricaemia [Not Recovered/Not Resolved]

NARRATIVE: CASE EVENT DATE: 20250911
